FAERS Safety Report 7763481-1 (Version None)
Quarter: 2011Q3

REPORT INFORMATION
  Report Type: 
  Country: None (occurrence: None)
  Receive Date: 20110920
  Receipt Date: 20110915
  Transmission Date: 20111222
  Serious: Yes (Hospitalization)
  Sender: FDA-Public Use
  Company Number: US-ABBOTT-11P-163-0855334-00

PATIENT
  Sex: Female
  Weight: 47.67 kg

DRUGS (1)
  1. LUPRON DEPOT [Suspect]
     Indication: ENDOMETRIOSIS
     Dates: start: 20110501

REACTIONS (5)
  - ANXIETY [None]
  - INSOMNIA [None]
  - ENDOMETRIOSIS [None]
  - DEPRESSION [None]
  - BULIMIA NERVOSA [None]
